FAERS Safety Report 25833699 (Version 2)
Quarter: 2025Q4

REPORT INFORMATION
  Report Type: Spontaneous
  Country: US (occurrence: US)
  Receive Date: 20250922
  Receipt Date: 20251004
  Transmission Date: 20260117
  Serious: No
  Sender: ELI LILLY AND COMPANY
  Company Number: US-ELI_LILLY_AND_COMPANY-US202509013909

PATIENT
  Age: 61 Year
  Sex: Female

DRUGS (1)
  1. REZVOGLAR KWIKPEN [Suspect]
     Active Substance: INSULIN GLARGINE-AGLR
     Indication: Type 1 diabetes mellitus
     Dosage: 22 U, EACH EVENING
     Route: 065
     Dates: start: 20250818, end: 20250820

REACTIONS (2)
  - Tremor [Unknown]
  - Visual impairment [Unknown]
